FAERS Safety Report 8044699-X (Version None)
Quarter: 2012Q1

REPORT INFORMATION
  Report Type: 
  Country: None (occurrence: None)
  Receive Date: 20120113
  Receipt Date: 20120106
  Transmission Date: 20120608
  Serious: Yes (Other)
  Sender: FDA-Public Use
  Company Number: FR-JNJFOC-20120102589

PATIENT
  Sex: Female

DRUGS (4)
  1. ACETAMINOPHEN [Concomitant]
     Route: 048
     Dates: start: 20111216
  2. XARELTO [Suspect]
     Indication: KNEE ARTHROPLASTY
     Route: 048
     Dates: start: 20111217, end: 20111219
  3. RABEPRAZOLE SODIUM [Concomitant]
     Route: 048
     Dates: start: 20111216, end: 20111220
  4. KETOPROFEN [Concomitant]
     Route: 048
     Dates: start: 20111216

REACTIONS (1)
  - VENOUS THROMBOSIS [None]
